FAERS Safety Report 7579894-7 (Version None)
Quarter: 2011Q2

REPORT INFORMATION
  Report Type: 
  Country: None (occurrence: None)
  Receive Date: 20110629
  Receipt Date: 20110616
  Transmission Date: 20111010
  Serious: Yes (Hospitalization, Other)
  Sender: FDA-Public Use
  Company Number: US-ELI_LILLY_AND_COMPANY-US201011006177

PATIENT
  Sex: Female

DRUGS (6)
  1. FORTEO [Suspect]
     Indication: OSTEOPOROSIS
     Dosage: 20 UG, DAILY (1/D)
     Dates: start: 20100225
  2. METOPROLOL TARTRATE [Concomitant]
  3. COUMADIN [Concomitant]
     Dosage: 07 MG, QD
  4. FORTEO [Suspect]
     Dosage: 20 UG, QD
  5. PREDNISONE [Concomitant]
     Dosage: 10 MG, QOD
  6. BENICAR [Concomitant]

REACTIONS (9)
  - PNEUMONIA [None]
  - DEAFNESS TRANSITORY [None]
  - EAR CONGESTION [None]
  - PAIN [None]
  - INFLUENZA [None]
  - EAR INFECTION [None]
  - COUGH [None]
  - DEEP VEIN THROMBOSIS [None]
  - DYSPHONIA [None]
